FAERS Safety Report 8556529-8 (Version None)
Quarter: 2012Q3

REPORT INFORMATION
  Report Type: 
  Country: None (occurrence: None)
  Receive Date: 20120801
  Receipt Date: 20120723
  Transmission Date: 20120928
  Serious: Yes (Hospitalization, Other)
  Sender: FDA-Public Use
  Company Number: US-BAYER-201035756NA

PATIENT
  Age: 23 Year
  Sex: Female
  Weight: 95.238 kg

DRUGS (7)
  1. YASMIN [Suspect]
     Indication: PRODUCT USED FOR UNKNOWN INDICATION
     Dosage: UNK
     Dates: start: 20010201
  2. HYDROCODONE BITARTRATE + ACETAMINOPHEN [Concomitant]
     Route: 048
  3. YASMIN [Suspect]
     Dosage: UNK
     Dates: start: 20010101, end: 20010501
  4. MOTRIN [Concomitant]
  5. AUGMENTIN '500' [Concomitant]
     Route: 048
  6. ACETAMINOPHEN [Concomitant]
  7. ANTIPYRINE W/BENZOCAINE [Concomitant]
     Route: 001

REACTIONS (4)
  - CHEST PAIN [None]
  - GALLBLADDER DISORDER [None]
  - CHOLECYSTITIS CHRONIC [None]
  - ABDOMINAL PAIN [None]
